FAERS Safety Report 5055944-7 (Version None)
Quarter: 2006Q3

REPORT INFORMATION
  Report Type: 
  Country: None (occurrence: None)
  Receive Date: 20060717
  Receipt Date: 20060628
  Transmission Date: 20061208
  Serious: Yes (Life-Threatening)
  Sender: FDA-Public Use
  Company Number: 2006RR-02840

PATIENT
  Age: 65 Year
  Sex: Female

DRUGS (4)
  1. SIMVASTATIN [Suspect]
     Dosage: 20 MG, ORAL
     Route: 048
     Dates: start: 20060505, end: 20060517
  2. AMOXICILLIN CAPSULE (AMOXICILLIN [Concomitant]
  3. IBUPROFEN FAMILY (IBUPROFEN) [Concomitant]
  4. PARACETAMOL FAMILY (PARACETAMOL) [Concomitant]

REACTIONS (2)
  - TACHYARRHYTHMIA [None]
  - VENTRICULAR EXTRASYSTOLES [None]
